FAERS Safety Report 5013865-X (Version None)
Quarter: 2006Q2

REPORT INFORMATION
  Report Type: 
  Country: None (occurrence: None)
  Receive Date: 20060525
  Receipt Date: 20060515
  Transmission Date: 20061013
  Serious: Yes (Hospitalization, Other)
  Sender: FDA-Public Use
  Company Number: HQWYE350115MAY06

PATIENT
  Age: 53 Year
  Sex: Female

DRUGS (2)
  1. AVLOCARDYL (PROPRANOLOL HYDROCHLORIDE, TABLET) [Suspect]
     Indication: HYPERTENSION
     Dosage: 160 MG 1X PER 1 DAY ORAL
     Route: 048
     Dates: end: 20060406
  2. AMLODIPINE BESYLATE [Suspect]
     Indication: HYPERTENSION
     Dosage: 10 MG 1X PER 1 DAY ORAL
     Route: 048
     Dates: start: 20060401, end: 20060406

REACTIONS (6)
  - ACUTE PULMONARY OEDEMA [None]
  - CHEST DISCOMFORT [None]
  - CHEST PAIN [None]
  - EYELID OEDEMA [None]
  - OEDEMA PERIPHERAL [None]
  - TACHYCARDIA [None]
